FAERS Safety Report 7053457 (Version 6)
Quarter: 2012Q4

REPORT INFORMATION
  Report Type: 
  Country: US (occurrence: US)
  Receive Date: 20090717
  Receipt Date: 20121015
  Transmission Date: 20130627
  Serious: Yes (Hospitalization)
  Sender: FDA-Public Use
  Company Number: US-BAYER-200918859NA

PATIENT
  Age: 42 Year
  Sex: Female
  Weight: 72.56 kg

DRUGS (12)
  1. YAZ [Suspect]
     Dosage: UNK
     Route: 048
     Dates: start: 200901, end: 201009
  2. YASMIN [Suspect]
     Indication: POLYCYSTIC OVARIES
     Dosage: UNK
     Dates: start: 200901, end: 201009
  3. OCELLA [Suspect]
     Dosage: UNK
     Dates: start: 200901, end: 201009
  4. METFORMIN [Concomitant]
  5. WELLBUTRIN [Concomitant]
  6. HUMIRA [Concomitant]
  7. IMMUNOSUPPRESSIVE AGENTS [Concomitant]
     Indication: PSORIASIS
  8. SPIRONOLACTONE [Concomitant]
     Dosage: UNK
     Dates: start: 200907
  9. VITAMIN C [Concomitant]
     Dosage: UNK
  10. FORTAMET [Concomitant]
     Dosage: 1000 mg, UNK
     Dates: start: 200907
  11. BYSTOLIC [Concomitant]
     Dosage: 5 mg, UNK
  12. CLOBEX [Concomitant]
     Dosage: UNK

REACTIONS (3)
  - Deep vein thrombosis [None]
  - Vaginal haemorrhage [Not Recovered/Not Resolved]
  - Alopecia [Recovered/Resolved]
